FAERS Safety Report 6237453-2 (Version None)
Quarter: 2009Q2

REPORT INFORMATION
  Report Type: 
  Country: None (occurrence: None)
  Receive Date: 20090619
  Receipt Date: 20090609
  Transmission Date: 20091009
  Serious: Yes (Hospitalization)
  Sender: FDA-Public Use
  Company Number: JP-AMGEN-US350250

PATIENT
  Sex: Male

DRUGS (11)
  1. ENBREL [Suspect]
     Indication: RHEUMATOID ARTHRITIS
     Dosage: LYOPHYLIZED, 25 MG 2X1/WK
     Route: 058
     Dates: start: 20071122, end: 20080302
  2. ENBREL [Suspect]
     Route: 058
     Dates: start: 20090106, end: 20090306
  3. ISCOTIN [Suspect]
     Indication: PROPHYLAXIS
     Route: 048
     Dates: start: 20071122
  4. BASEN [Concomitant]
     Route: 048
  5. LOXONIN [Concomitant]
     Indication: RHEUMATOID ARTHRITIS
     Route: 048
  6. PYDOXAL [Concomitant]
     Indication: PROPHYLAXIS
     Route: 048
     Dates: start: 20071122
  7. PREDNISOLONE [Concomitant]
     Indication: RHEUMATOID ARTHRITIS
     Route: 048
  8. ACINON [Concomitant]
     Indication: PROPHYLAXIS
     Route: 048
  9. ACTOS [Concomitant]
     Route: 048
  10. LIPITOR [Concomitant]
     Route: 048
  11. FOSAMAX [Concomitant]
     Route: 048

REACTIONS (1)
  - APLASIA PURE RED CELL [None]
